FAERS Safety Report 9970675 (Version 2)
Quarter: 2014Q1

REPORT INFORMATION
  Report Type: Report from Study
  Country: PR (occurrence: PR)
  Receive Date: 20140306
  Receipt Date: 20140306
  Transmission Date: 20141002
  Serious: Yes (Hospitalization, Other)
  Sender: FDA-Public Use
  Company Number: PR-ABBVIE-13P-131-1110250-00

PATIENT
  Sex: Female
  Weight: 72.19 kg

DRUGS (12)
  1. HUMIRA [Suspect]
     Indication: RHEUMATOID ARTHRITIS
     Route: 058
     Dates: start: 2012, end: 20130624
  2. SYNTHROID [Concomitant]
     Indication: THYROID DISORDER
     Route: 048
  3. HYZAAR [Concomitant]
     Indication: HYPERTENSION
     Route: 048
  4. LINAGLIPTIN W/METFORMIN [Concomitant]
     Indication: DIABETES MELLITUS
     Route: 048
  5. LIPITOR [Concomitant]
     Indication: BLOOD CHOLESTEROL INCREASED
     Route: 048
  6. FOLIC ACID [Concomitant]
     Indication: RHEUMATOID ARTHRITIS
     Route: 048
  7. VITAMIN D NOS [Concomitant]
     Indication: RHEUMATOID ARTHRITIS
     Route: 048
  8. FOSAMAX [Concomitant]
     Indication: RHEUMATOID ARTHRITIS
     Route: 048
  9. METHOTREXATE [Concomitant]
     Indication: RHEUMATOID ARTHRITIS
     Route: 048
  10. CATAFLAM [Concomitant]
     Indication: PAIN
     Route: 048
  11. TRAMADOL [Concomitant]
     Indication: PAIN
     Route: 048
  12. FISH OIL [Concomitant]
     Indication: ROUTINE HEALTH MAINTENANCE
     Route: 048

REACTIONS (7)
  - Breast cancer [Recovering/Resolving]
  - Thyroid neoplasm [Recovered/Resolved]
  - Inflammation [Recovered/Resolved]
  - Depression [Not Recovered/Not Resolved]
  - Anxiety [Not Recovered/Not Resolved]
  - Chills [Not Recovered/Not Resolved]
  - Fatigue [Not Recovered/Not Resolved]
